FAERS Safety Report 24402667 (Version 1)
Quarter: 2024Q4

REPORT INFORMATION
  Report Type: Spontaneous
  Country: BE (occurrence: BE)
  Receive Date: 20241007
  Receipt Date: 20241007
  Transmission Date: 20250115
  Serious: Yes (Other)
  Sender: ACCORD
  Company Number: BE-MLMSERVICE-20240923-PI198380-00270-1

PATIENT
  Age: 6 Month
  Sex: Female

DRUGS (8)
  1. METHOTREXATE [Suspect]
     Active Substance: METHOTREXATE
     Indication: Inflammatory bowel disease
     Dosage: 15MG/M2/W
  2. ANAKINRA [Suspect]
     Active Substance: ANAKINRA
     Indication: Inflammatory bowel disease
     Dosage: 8MG/KG/D
  3. ADALIMUMAB [Suspect]
     Active Substance: ADALIMUMAB
     Indication: Inflammatory bowel disease
     Dosage: 40 MG/2 WEEKS
  4. METHYLPREDNISOLONE [Suspect]
     Active Substance: METHYLPREDNISOLONE
     Indication: Inflammatory bowel disease
     Dosage: UP TO 2MG/KG/D
  5. METHYLPREDNISOLONE [Suspect]
     Active Substance: METHYLPREDNISOLONE
     Indication: Enterocolitis haemorrhagic
     Dosage: UP TO 2MG/KG/D
  6. ANAKINRA [Suspect]
     Active Substance: ANAKINRA
     Indication: Enterocolitis haemorrhagic
     Dosage: 8MG/KG/D
  7. ADALIMUMAB [Suspect]
     Active Substance: ADALIMUMAB
     Indication: Enterocolitis haemorrhagic
     Dosage: 40 MG/2 WEEKS
  8. METHOTREXATE [Suspect]
     Active Substance: METHOTREXATE
     Indication: Enterocolitis haemorrhagic
     Dosage: 15MG/M2/W

REACTIONS (4)
  - Candida infection [Recovered/Resolved]
  - Device related infection [Recovered/Resolved]
  - Pneumonia [Recovered/Resolved]
  - Off label use [Unknown]
